FAERS Safety Report 7297398-6 (Version None)
Quarter: 2011Q1

REPORT INFORMATION
  Report Type: 
  Country: None (occurrence: None)
  Receive Date: 20110216
  Receipt Date: 20110210
  Transmission Date: 20110831
  Serious: Yes (Death, Hospitalization, Other)
  Sender: FDA-Public Use
  Company Number: US-ELI_LILLY_AND_COMPANY-US201102002963

PATIENT
  Sex: Male

DRUGS (4)
  1. CYMBALTA [Suspect]
     Dosage: UNK, UNKNOWN
  2. HEPARIN [Concomitant]
  3. CYMBALTA [Suspect]
     Dosage: UNK, UNKNOWN
  4. LOPRESSOR [Concomitant]

REACTIONS (16)
  - SEPTIC SHOCK [None]
  - BLOOD GLUCOSE INCREASED [None]
  - ALTERED STATE OF CONSCIOUSNESS [None]
  - HEART RATE IRREGULAR [None]
  - SYNCOPE [None]
  - MENTAL IMPAIRMENT [None]
  - JAUNDICE [None]
  - FALL [None]
  - HALLUCINATION [None]
  - IRRITABILITY [None]
  - CARDIAC ARREST [None]
  - HYPOTENSION [None]
  - DRUG HYPERSENSITIVITY [None]
  - HAEMORRHAGE [None]
  - BACTERIAL DISEASE CARRIER [None]
  - CLOSTRIDIAL INFECTION [None]
